FAERS Safety Report 25924583 (Version 3)
Quarter: 2025Q4

REPORT INFORMATION
  Report Type: Report from Study
  Country: CO (occurrence: CO)
  Receive Date: 20251015
  Receipt Date: 20251110
  Transmission Date: 20260118
  Serious: Yes (Other)
  Sender: ASTELLAS
  Company Number: CO-ASTELLAS-2025-AER-055719

PATIENT
  Age: 65 Year
  Sex: Female
  Weight: 69 kg

DRUGS (4)
  1. PROGRAF [Suspect]
     Active Substance: TACROLIMUS
     Indication: Renal transplant
     Dosage: PROGRAF 1 MG: DAILY DOSE OF 3 MG (2 MG AM, 1 MG PM EVERY 12 HOURS)
     Route: 048
     Dates: end: 20250914
  2. MYCOPHENOLIC ACID [Concomitant]
     Active Substance: MYCOPHENOLIC ACID
     Indication: Product used for unknown indication
     Dosage: 500MG 1 AM, 1 PM
     Route: 065
  3. VALSARTAN [Concomitant]
     Active Substance: VALSARTAN
     Indication: Product used for unknown indication
     Route: 065
  4. PREGABALIN [Concomitant]
     Active Substance: PREGABALIN
     Indication: Product used for unknown indication
     Route: 065

REACTIONS (2)
  - Secondary immunodeficiency [Not Recovered/Not Resolved]
  - Immunosuppressant drug level abnormal [Not Recovered/Not Resolved]

NARRATIVE: CASE EVENT DATE: 20250901
